FAERS Safety Report 7936869-3 (Version None)
Quarter: 2011Q4

REPORT INFORMATION
  Report Type: 
  Country: None (occurrence: None)
  Receive Date: 20111123
  Receipt Date: 20111123
  Transmission Date: 20120403
  Serious: Yes (Hospitalization)
  Sender: FDA-Public Use
  Company Number: None

PATIENT
  Sex: Female
  Weight: 59.9 kg

DRUGS (4)
  1. RANEXA [Suspect]
     Indication: ANGINA PECTORIS
     Dosage: 500 MG
     Route: 048
  2. ATENOLOL [Concomitant]
  3. NITROGLYCERIN [Concomitant]
  4. PLAVIX [Concomitant]

REACTIONS (4)
  - ASTHENIA [None]
  - FATIGUE [None]
  - CHEST PAIN [None]
  - TREMOR [None]
